FAERS Safety Report 16990502 (Version 1)
Quarter: 2019Q4

REPORT INFORMATION
  Report Type: Spontaneous
  Country: AU (occurrence: AU)
  Receive Date: 20191104
  Receipt Date: 20191104
  Transmission Date: 20200122
  Serious: Yes (Hospitalization, Other)
  Sender: FDA-Public Use
  Company Number: AU-MYLANLABS-2019M1102512

PATIENT
  Age: 22 Year
  Sex: Female

DRUGS (1)
  1. POSTRELLE-1 [Suspect]
     Active Substance: LEVONORGESTREL
     Indication: POST COITAL CONTRACEPTION
     Dosage: UNK
     Dates: start: 20191003

REACTIONS (3)
  - Loss of consciousness [Unknown]
  - Haemoglobin decreased [Unknown]
  - Vaginal haemorrhage [Recovering/Resolving]

NARRATIVE: CASE EVENT DATE: 20191008
